FAERS Safety Report 7432361-3 (Version None)
Quarter: 2011Q2

REPORT INFORMATION
  Report Type: 
  Country: None (occurrence: None)
  Receive Date: 20110422
  Receipt Date: 20110420
  Transmission Date: 20111010
  Serious: Yes (Hospitalization)
  Sender: FDA-Public Use
  Company Number: PHHO2011GB06305

PATIENT
  Sex: Male

DRUGS (10)
  1. OMEPRAZOLE [Concomitant]
  2. ACETAMINOPHEN AND CODEINE PHOSPHATE [Concomitant]
  3. BUSCOPAN [Concomitant]
  4. AFINITOR [Suspect]
     Indication: PANCREATIC NEUROENDOCRINE TUMOUR METASTATIC
     Dosage: UNK
     Route: 048
     Dates: start: 20110324, end: 20110406
  5. PROPRANOLOL [Concomitant]
  6. CREON [Concomitant]
  7. AMITRIPTYLINE HCL [Concomitant]
  8. MOVIPREP [Concomitant]
  9. PREDNISOLONE [Concomitant]
  10. TRANEXAMIC ACID [Concomitant]

REACTIONS (2)
  - DISEASE PROGRESSION [None]
  - ANAEMIA [None]
